FAERS Safety Report 9080357 (Version 1)
Quarter: 2013Q1

REPORT INFORMATION
  Report Type: Report from Study
  Country: US (occurrence: US)
  Receive Date: 20130130
  Receipt Date: 20130130
  Transmission Date: 20140127
  Serious: No
  Sender: FDA-Public Use
  Company Number: US-ABBOTT-12P-163-0973520-00

PATIENT
  Age: 56 Year
  Sex: Female

DRUGS (15)
  1. HUMIRA [Suspect]
     Indication: PSORIASIS
     Dates: start: 201204
  2. HUMIRA [Suspect]
     Indication: PSORIATIC ARTHROPATHY
  3. METHOTREXATE [Concomitant]
     Indication: PSORIATIC ARTHROPATHY
     Dosage: 3 TABS WEEKLY
  4. METFORMIN [Concomitant]
     Indication: TYPE 2 DIABETES MELLITUS
     Dosage: 2 TABS IN THE MORNING AND 3 TABS IN THE EVENING
  5. LOSARTAN POTASSIUM [Concomitant]
     Indication: HYPERTENSION
     Dosage: 50MG DAILY
  6. SIMVASTATIN [Concomitant]
     Indication: BLOOD CHOLESTEROL INCREASED
     Dosage: 20MG DAILY
  7. FLUOXETINE [Concomitant]
     Indication: DEPRESSION
  8. BUPROPION [Concomitant]
     Indication: DEPRESSION
     Dosage: 150MG DAILY
  9. BENADRYL [Concomitant]
     Indication: SEASONAL ALLERGY
     Dosage: AT NGIHT
  10. MELOXICAM [Concomitant]
     Indication: PSORIATIC ARTHROPATHY
     Dosage: 50MG DAILY
  11. CLONAZEPAM [Concomitant]
     Indication: RESTLESS LEGS SYNDROME
     Dosage: AT NIGHT
  12. TRAMADOL [Concomitant]
     Indication: PAIN
  13. SUDAFED [Concomitant]
     Indication: SINUS HEADACHE
  14. ROYAL MECCA [Concomitant]
     Indication: SUPPLEMENTATION THERAPY
  15. MULTIVITAMIN [Concomitant]
     Indication: VITAMIN SUPPLEMENTATION

REACTIONS (6)
  - Pruritus generalised [Not Recovered/Not Resolved]
  - Dry skin [Not Recovered/Not Resolved]
  - Skin exfoliation [Not Recovered/Not Resolved]
  - Drug ineffective [Not Recovered/Not Resolved]
  - Alopecia [Not Recovered/Not Resolved]
  - Psoriasis [Not Recovered/Not Resolved]
